FAERS Safety Report 17273334 (Version 2)
Quarter: 2020Q1

REPORT INFORMATION
  Report Type: Report from Study
  Country: CA (occurrence: CA)
  Receive Date: 20200115
  Receipt Date: 20200324
  Transmission Date: 20200409
  Serious: Yes (Other)
  Sender: FDA-Public Use
  Company Number: CA-JNJFOC-20181140491

PATIENT
  Age: 47 Year
  Sex: Female
  Weight: 100 kg

DRUGS (1)
  1. STELARA [Suspect]
     Active Substance: USTEKINUMAB
     Indication: CROHN^S DISEASE
     Route: 058
     Dates: start: 20171006

REACTIONS (7)
  - Influenza [Recovered/Resolved]
  - Stress [Recovering/Resolving]
  - Therapeutic product effect decreased [Unknown]
  - Crohn^s disease [Recovering/Resolving]
  - Fungal infection [Recovered/Resolved]
  - Ear infection [Recovered/Resolved]
  - Hypertension [Recovering/Resolving]

NARRATIVE: CASE EVENT DATE: 2018
